FAERS Safety Report 8762357 (Version 2)
Quarter: 2012Q4

REPORT INFORMATION
  Report Type: 
  Country: JP (occurrence: JP)
  Receive Date: 20120830
  Receipt Date: 20120830
  Transmission Date: 20130627
  Serious: Yes (Hospitalization)
  Sender: FDA-Public Use
  Company Number: PHHY2012JP054338

PATIENT
  Age: 67 Year
  Sex: Male

DRUGS (3)
  1. TEGRETOL [Suspect]
     Indication: CONVULSION
     Dosage: 200 mg, Daily
     Route: 048
     Dates: start: 20110715, end: 20110826
  2. ISONIAZID [Suspect]
     Dosage: 300 mg, Daily
     Route: 048
     Dates: end: 20110826
  3. CRAVIT [Suspect]
     Dosage: 500 mg, Daily
     Route: 048
     Dates: end: 20110826

REACTIONS (3)
  - Drug reaction with eosinophilia and systemic symptoms [Recovered/Resolved]
  - Drug eruption [Recovered/Resolved]
  - Pyrexia [Recovered/Resolved]
